FAERS Safety Report 9967898 (Version 1)
Quarter: 2014Q1

REPORT INFORMATION
  Report Type: Report from Study
  Country: US (occurrence: US)
  Receive Date: 20140306
  Receipt Date: 20140306
  Transmission Date: 20141002
  Serious: No
  Sender: FDA-Public Use
  Company Number: US-ABBVIE-13P-163-1139823-00

PATIENT
  Age: 37 Year
  Sex: Male

DRUGS (4)
  1. HUMIRA [Suspect]
     Indication: CROHN^S DISEASE
  2. HUMIRA [Suspect]
     Dates: start: 20130812, end: 20130812
  3. HUMIRA [Suspect]
     Dates: start: 20130826, end: 20130826
  4. PREDNISONE [Concomitant]
     Indication: CROHN^S DISEASE
     Dosage: 20 MG DAILY
     Route: 048

REACTIONS (1)
  - Incorrect product storage [Unknown]
